FAERS Safety Report 9873505 (Version 1)
Quarter: 2014Q1

REPORT INFORMATION
  Report Type: Spontaneous
  Country: US (occurrence: US)
  Receive Date: 20140206
  Receipt Date: 20140206
  Transmission Date: 20141002
  Serious: No
  Sender: FDA-Public Use
  Company Number: US-ACORDA-ACO_34169_2013

PATIENT
  Age: 46 Year
  Sex: Female
  Weight: 124.72 kg

DRUGS (3)
  1. AMPYRA [Suspect]
     Indication: GAIT DISTURBANCE
     Dosage: 10 MG, BID
     Route: 048
     Dates: end: 201209
  2. AMPYRA [Suspect]
     Dosage: 10 MG, BID
     Route: 048
  3. GILENYA [Concomitant]
     Indication: PRODUCT USED FOR UNKNOWN INDICATION

REACTIONS (3)
  - Mobility decreased [Recovered/Resolved]
  - Sensation of heaviness [Recovered/Resolved]
  - Musculoskeletal stiffness [Recovered/Resolved]
